FAERS Safety Report 18734641 (Version 1)
Quarter: 2021Q1

REPORT INFORMATION
  Report Type: Spontaneous
  Country: US (occurrence: US)
  Receive Date: 20210112
  Receipt Date: 20210112
  Transmission Date: 20210419
  Serious: Yes (Hospitalization, Other)
  Sender: FDA-Public Use
  Company Number: None

PATIENT
  Age: 51 Year
  Sex: Female

DRUGS (1)
  1. HUMIRA [Suspect]
     Active Substance: ADALIMUMAB
     Indication: CROHN^S DISEASE
     Dosage: ?          OTHER FREQUENCY:EVERY14DAYS;?
     Dates: start: 20190301

REACTIONS (3)
  - Intestinal obstruction [None]
  - Crohn^s disease [None]
  - Bowel movement irregularity [None]

NARRATIVE: CASE EVENT DATE: 20201227
